FAERS Safety Report 22354576 (Version 1)
Quarter: 2023Q2

REPORT INFORMATION
  Report Type: Report from Study
  Country: GB (occurrence: GB)
  Receive Date: 20230523
  Receipt Date: 20230523
  Transmission Date: 20230721
  Serious: Yes (Other)
  Sender: FDA-Public Use
  Company Number: GB-MYLANLABS-2023M1053280

PATIENT
  Age: 47 Year
  Sex: Male

DRUGS (7)
  1. ACYCLOVIR [Suspect]
     Active Substance: ACYCLOVIR
     Indication: Antiviral prophylaxis
     Dosage: 200 MILLIGRAM, BID (RECEIVED AFTER TRANSPLANTATION)
     Route: 048
  2. CYTARABINE [Suspect]
     Active Substance: CYTARABINE
     Indication: Bone marrow conditioning regimen
     Dosage: 200 MILLIGRAM/SQ. METER, BID (RECEIVED ON DAYS -5 TO -2 OF TRANSPLANTATION)
     Route: 042
  3. ETOPOSIDE [Suspect]
     Active Substance: ETOPOSIDE
     Indication: Bone marrow conditioning regimen
     Dosage: 200 MILLIGRAM/SQ. METER (RECEIVED ON DAYS -5 TO -2 OF TRANSPLANTATION)
     Route: 042
  4. ALEMTUZUMAB [Suspect]
     Active Substance: ALEMTUZUMAB
     Indication: Bone marrow conditioning regimen
     Dosage: 10 MILLIGRAM (RECEIVED ON DAYS -5 TO -1 OF TRANSPLANTATION)
     Route: 042
  5. MELPHALAN [Suspect]
     Active Substance: MELPHALAN
     Indication: Bone marrow conditioning regimen
     Dosage: 140 MILLIGRAM/SQ. METER (RECEIVED ON DAY -1 OF TRANSPLANTATION)
     Route: 042
  6. CARMUSTINE [Suspect]
     Active Substance: CARMUSTINE
     Indication: Bone marrow conditioning regimen
     Dosage: 300 MILLIGRAM/SQ. METER (RECEIVED ON DAY -6 OF TRANSPLANTATION)
     Route: 042
  7. CYCLOSPORINE [Concomitant]
     Active Substance: CYCLOSPORINE
     Indication: Prophylaxis against graft versus host disease
     Dosage: UNK (RECEIVED FROM DAY -1 OF TRANSPLANTATION)
     Route: 065

REACTIONS (3)
  - Epstein-Barr virus infection [Unknown]
  - Post transplant lymphoproliferative disorder [Recovered/Resolved]
  - Drug ineffective [Unknown]
